FAERS Safety Report 5387339-0 (Version None)
Quarter: 2007Q3

REPORT INFORMATION
  Report Type: 
  Country: None (occurrence: None)
  Receive Date: 20070716
  Receipt Date: 20070712
  Transmission Date: 20080115
  Serious: Yes (Death, Other)
  Sender: FDA-Public Use
  Company Number: PHBS2007JP11344

PATIENT
  Age: 82 Year
  Sex: Female

DRUGS (3)
  1. ZOMETA [Suspect]
     Dosage: UNK, UNK
     Route: 042
  2. AREDIA [Suspect]
     Dosage: UNK, UNK
     Route: 042
  3. MEDROXYPROGESTERONE ACETATE [Concomitant]

REACTIONS (5)
  - CEREBRAL HAEMORRHAGE [None]
  - EXCORIATION [None]
  - OSTEONECROSIS [None]
  - PRIMARY SEQUESTRUM [None]
  - TOOTH EXTRACTION [None]
